FAERS Safety Report 8717143 (Version 2)
Quarter: 2012Q4

REPORT INFORMATION
  Report Type: 
  Country: ZA (occurrence: ZA)
  Receive Date: 20120810
  Receipt Date: 20120828
  Transmission Date: 20130627
  Serious: Yes (Hospitalization)
  Sender: FDA-Public Use
  Company Number: ZA-NOVOPROD-357180

PATIENT
  Sex: Female

DRUGS (2)
  1. LEVEMIR [Suspect]
     Indication: GESTATIONAL DIABETES
     Dosage: 8 U, qd
     Route: 064
     Dates: start: 20110401
  2. NOVORAPID [Suspect]
     Indication: GESTATIONAL DIABETES
     Dosage: 18 U, qd
     Route: 064
     Dates: start: 20110322

REACTIONS (4)
  - Large for dates baby [Recovered/Resolved]
  - Foetal exposure during pregnancy [Recovered/Resolved]
  - Maternal drugs affecting foetus [None]
  - Caesarean section [None]
